FAERS Safety Report 6781389-5 (Version None)
Quarter: 2010Q2

REPORT INFORMATION
  Report Type: 
  Country: None (occurrence: None)
  Receive Date: 20100621
  Receipt Date: 20100225
  Transmission Date: 20101027
  Serious: Yes (Hospitalization, Other)
  Sender: FDA-Public Use
  Company Number: US-AMGEN-QUU395201

PATIENT
  Age: 26 Year
  Sex: Female

DRUGS (1)
  1. ARANESP [Suspect]
     Indication: DRUG USE FOR UNKNOWN INDICATION

REACTIONS (3)
  - CONVULSION [None]
  - HAEMOGLOBIN DECREASED [None]
  - HYPERTENSION [None]
